FAERS Safety Report 9598556 (Version 1)
Quarter: 2013Q4

REPORT INFORMATION
  Report Type: Spontaneous
  Country: US (occurrence: US)
  Receive Date: 20131004
  Receipt Date: 20131004
  Transmission Date: 20140711
  Serious: No
  Sender: FDA-Public Use
  Company Number: US-AMGEN-USASP2013024536

PATIENT
  Age: 55 Year
  Sex: Female

DRUGS (12)
  1. ENBREL [Suspect]
     Indication: PRODUCT USED FOR UNKNOWN INDICATION
     Dosage: 50 MG, QWK
     Route: 058
  2. ANASTROZOLE [Concomitant]
     Dosage: 1 MG, UNK
  3. HUMIRA [Concomitant]
     Dosage: UNK, 40 MG/0.8
  4. BUPROPION [Concomitant]
     Dosage: 100 MG, UNK
  5. VITAMIN A AND D [Concomitant]
     Dosage: UNK
  6. GLUCOSAMINE [Concomitant]
     Dosage: 1000 MG, UNK
  7. CALCIUM MAGNESIUM CITRATE [Concomitant]
     Dosage: UNK
  8. MULTIVITAMINS, PLAIN [Concomitant]
     Dosage: UNK
  9. NAC                                /00082801/ [Concomitant]
     Dosage: 600 MG, UNK
  10. BROMELAIN [Concomitant]
     Dosage: 100 MG, UNK
  11. PROBIOTIC                          /06395501/ [Concomitant]
     Dosage: UNK
  12. DHA [Concomitant]
     Dosage: 200 MG, UNK

REACTIONS (5)
  - Injection site reaction [Unknown]
  - Injection site rash [Unknown]
  - Psoriatic arthropathy [Unknown]
  - Cough [Unknown]
  - Mobility decreased [Unknown]
